FAERS Safety Report 4771076-7 (Version None)
Quarter: 2005Q3

REPORT INFORMATION
  Report Type: 
  Country: None (occurrence: None)
  Receive Date: 20050914
  Receipt Date: 20050830
  Transmission Date: 20060218
  Serious: Yes (Hospitalization, Other)
  Sender: FDA-Public Use
  Company Number: USA0508106784

PATIENT
  Age: 66 Year
  Sex: Female

DRUGS (6)
  1. HUMULIN R [Suspect]
     Indication: DIABETES MELLITUS
  2. NORVASC [Concomitant]
  3. LIPITOR [Concomitant]
  4. LASIX [Concomitant]
  5. SYNTHROID [Concomitant]
  6. ZOLOFT [Concomitant]

REACTIONS (3)
  - BLINDNESS [None]
  - RENAL FAILURE [None]
  - RENAL TRANSPLANT [None]
